FAERS Safety Report 7541034-8 (Version None)
Quarter: 2011Q2

REPORT INFORMATION
  Report Type: 
  Country: None (occurrence: None)
  Receive Date: 20110610
  Receipt Date: 20100817
  Transmission Date: 20111010
  Serious: No
  Sender: FDA-Public Use
  Company Number: A0876366A

PATIENT
  Age: 34 Year
  Sex: Female

DRUGS (5)
  1. ALTABAX [Suspect]
     Indication: FOLLICULITIS
     Dosage: 1APP TWICE PER DAY
     Route: 061
     Dates: start: 20100510
  2. AMOXICILLIN [Concomitant]
  3. VITAMIN TAB [Concomitant]
  4. DORYX [Concomitant]
     Indication: FOLLICULITIS
     Dosage: 150MG PER DAY
  5. BIRTH CONTROL PILL [Concomitant]

REACTIONS (1)
  - FOLLICULITIS [None]
